FAERS Safety Report 25613918 (Version 3)
Quarter: 2025Q3

REPORT INFORMATION
  Report Type: Spontaneous
  Country: DO (occurrence: DO)
  Receive Date: 20250728
  Receipt Date: 20250916
  Transmission Date: 20251021
  Serious: No
  Sender: PFIZER
  Company Number: DO-PFIZER INC-PV202500086119

PATIENT
  Age: 11 Year
  Sex: Female

DRUGS (1)
  1. GENOTROPIN [Suspect]
     Active Substance: SOMATROPIN
     Dosage: 0.6 MG, EVERY DAY (AT NIGHT)

REACTIONS (2)
  - Device power source issue [Unknown]
  - Device information output issue [Unknown]
